FAERS Safety Report 8193747-5 (Version None)
Quarter: 2012Q1

REPORT INFORMATION
  Report Type: 
  Country: None (occurrence: None)
  Receive Date: 20120308
  Receipt Date: 20120228
  Transmission Date: 20120608
  Serious: Yes (Hospitalization)
  Sender: FDA-Public Use
  Company Number: CH-ASTRAZENECA-2012SE14345

PATIENT
  Age: 84 Year
  Sex: Female

DRUGS (10)
  1. AUGMENTIN '125' [Concomitant]
     Route: 048
     Dates: start: 20120101, end: 20120107
  2. ESIDRIX [Concomitant]
     Route: 048
     Dates: start: 20120111
  3. CORDARONE [Suspect]
     Indication: SICK SINUS SYNDROME
     Route: 048
     Dates: end: 20120117
  4. NEXIUM [Suspect]
     Route: 048
     Dates: start: 20120101
  5. IRBESARTAN [Concomitant]
     Route: 048
  6. SINTROM [Suspect]
     Indication: SICK SINUS SYNDROME
     Dosage: AS NECESSARY
     Route: 048
  7. CLARITHROMYCIN [Suspect]
     Route: 048
     Dates: start: 20120104, end: 20120117
  8. IMIPENEM AND CILASTATIN SODIUM [Concomitant]
     Route: 048
     Dates: start: 20120108, end: 20120112
  9. METOPROLOL TARTRATE AND HYDROCHLOROTHIAZIDE [Concomitant]
     Route: 048
  10. ROCEPHIN [Concomitant]
     Route: 040
     Dates: start: 20120101, end: 20120103

REACTIONS (1)
  - INTERNATIONAL NORMALISED RATIO INCREASED [None]
